FAERS Safety Report 14151591 (Version 1)
Quarter: 2017Q4

REPORT INFORMATION
  Report Type: Spontaneous
  Country: US (occurrence: None)
  Receive Date: 20171101
  Receipt Date: 20171101
  Transmission Date: 20180321
  Serious: Yes (Hospitalization)
  Sender: FDA-Public Use
  Company Number: None

PATIENT
  Age: 57 Year
  Sex: Male
  Weight: 102.73 kg

DRUGS (1)
  1. CASODEX [Suspect]
     Active Substance: BICALUTAMIDE
     Dates: end: 20171020

REACTIONS (4)
  - Acute kidney injury [None]
  - Urinary retention [None]
  - Calculus bladder [None]
  - Nephrolithiasis [None]

NARRATIVE: CASE EVENT DATE: 20171016
